FAERS Safety Report 7792646-8 (Version None)
Quarter: 2011Q4

REPORT INFORMATION
  Report Type: 
  Country: None (occurrence: None)
  Receive Date: 20111003
  Receipt Date: 20110920
  Transmission Date: 20120403
  Serious: Yes (Hospitalization, Other)
  Sender: FDA-Public Use
  Company Number: US-ELI_LILLY_AND_COMPANY-US201005001254

PATIENT
  Sex: Female

DRUGS (6)
  1. ERGOCALCIFEROL (VITAMIN D) [Concomitant]
     Dosage: 1 D/F, MONTHLY (1/M)
  2. MULTIVITAMIN [Concomitant]
  3. FORTEO [Suspect]
     Dosage: 20 UG, DAILY (1/D)
  4. FORTEO [Suspect]
     Indication: OSTEOPOROSIS
     Dosage: 20 UG, QD
     Dates: start: 20100301, end: 20100428
  5. FORTEO [Suspect]
     Dosage: 20 UG, QD
  6. FORTEO [Suspect]
     Dosage: 20 UG, DAILY (1/D)
     Dates: start: 20100429

REACTIONS (10)
  - VERTIGO [None]
  - MALAISE [None]
  - BONE DISORDER [None]
  - VOMITING [None]
  - ARTHROPATHY [None]
  - ARTHRALGIA [None]
  - DIARRHOEA [None]
  - NAUSEA [None]
  - PAIN [None]
  - CARDIAC DISORDER [None]
